FAERS Safety Report 13443084 (Version 1)
Quarter: 2017Q2

REPORT INFORMATION
  Report Type: Report from Study
  Country: US (occurrence: US)
  Receive Date: 20170414
  Receipt Date: 20170414
  Transmission Date: 20170830
  Serious: Yes (Hospitalization)
  Sender: FDA-Public Use
  Company Number: US-ROCHE-1917935

PATIENT
  Sex: Female

DRUGS (1)
  1. PULMOZYME [Suspect]
     Active Substance: DORNASE ALFA
     Indication: CYSTIC FIBROSIS
     Dosage: ONCE DAILY IN HOUSE AND AT HOME TWICE DAILY ;ONGOING: YES
     Route: 065

REACTIONS (2)
  - Lung disorder [Unknown]
  - Diabetes mellitus [Not Recovered/Not Resolved]
